FAERS Safety Report 15392274 (Version 1)
Quarter: 2018Q3

REPORT INFORMATION
  Report Type: Spontaneous
  Country: US (occurrence: US)
  Receive Date: 20180917
  Receipt Date: 20180917
  Transmission Date: 20181010
  Serious: No
  Sender: FDA-Public Use
  Company Number: US-BAYER-2018-173863

PATIENT
  Age: 50 Year
  Sex: Female
  Weight: 99.77 kg

DRUGS (1)
  1. ZEGERID OTC CAPSULES [Suspect]
     Active Substance: OMEPRAZOLE\SODIUM BICARBONATE
     Indication: GASTROINTESTINAL DISORDER
     Dosage: 1 DF, QD

REACTIONS (3)
  - Off label use [Unknown]
  - Product prescribing issue [Unknown]
  - Product use in unapproved indication [Unknown]
